FAERS Safety Report 8252692-7 (Version None)
Quarter: 2012Q2

REPORT INFORMATION
  Report Type: 
  Country: None (occurrence: None)
  Receive Date: 20120402
  Receipt Date: 20110816
  Transmission Date: 20120825
  Serious: No
  Sender: FDA-Public Use
  Company Number: US-ABBOTT-11P-163-0848256-00

PATIENT
  Sex: Male
  Weight: 86.26 kg

DRUGS (5)
  1. TESTIM [Concomitant]
     Dates: start: 20110728
  2. HYDROCHLOROTHIAZIDE [Concomitant]
     Indication: HYPERTENSION
  3. XANAX [Concomitant]
     Indication: ANXIETY
  4. TESTIM [Concomitant]
     Indication: BLOOD TESTOSTERONE DECREASED
  5. ANDROGEL [Suspect]
     Indication: BLOOD TESTOSTERONE DECREASED
     Dates: start: 20100601, end: 20110723

REACTIONS (4)
  - DEPRESSION [None]
  - WEIGHT INCREASED [None]
  - BLOOD TESTOSTERONE DECREASED [None]
  - DISTURBANCE IN ATTENTION [None]
